FAERS Safety Report 6533971-8 (Version None)
Quarter: 2010Q1

REPORT INFORMATION
  Report Type: 
  Country: None (occurrence: None)
  Receive Date: 20100112
  Receipt Date: 20100104
  Transmission Date: 20100710
  Serious: Yes (Hospitalization)
  Sender: FDA-Public Use
  Company Number: FR-WYE-G05264310

PATIENT
  Sex: Female

DRUGS (1)
  1. ADVIL [Suspect]
     Indication: OSTEOARTHRITIS
     Dosage: UNKNOWN
     Route: 048
     Dates: end: 20091103

REACTIONS (3)
  - DEEP VEIN THROMBOSIS [None]
  - IRON DEFICIENCY ANAEMIA [None]
  - OCCULT BLOOD [None]
